FAERS Safety Report 9130894 (Version 1)
Quarter: 2013Q1

REPORT INFORMATION
  Report Type: Spontaneous
  Country: US (occurrence: US)
  Receive Date: 20130301
  Receipt Date: 20130301
  Transmission Date: 20140127
  Serious: No
  Sender: FDA-Public Use
  Company Number: US-MYLANLABS-2012S1003293

PATIENT
  Sex: Female

DRUGS (16)
  1. METOPROLOL TARTRATE TABLETS, USP [Suspect]
     Indication: ARRHYTHMIA
     Route: 048
     Dates: start: 2007, end: 201203
  2. METOPROLOL TARTRATE TABLETS, USP [Suspect]
     Indication: BLOOD PRESSURE INCREASED
     Route: 048
     Dates: start: 2007, end: 201203
  3. METOPROLOL TARTRATE TABLETS, USP [Suspect]
     Indication: PALPITATIONS
     Route: 048
     Dates: start: 2007, end: 201203
  4. METOPROLOL TARTRATE TABLETS, USP [Suspect]
     Indication: ARRHYTHMIA
     Route: 048
     Dates: start: 2007, end: 201203
  5. METOPROLOL TARTRATE TABLETS, USP [Suspect]
     Indication: BLOOD PRESSURE INCREASED
     Route: 048
     Dates: start: 2007, end: 201203
  6. METOPROLOL TARTRATE TABLETS, USP [Suspect]
     Indication: PALPITATIONS
     Route: 048
     Dates: start: 2007, end: 201203
  7. METOPROLOL TARTRATE TABLETS, USP [Suspect]
     Indication: ARRHYTHMIA
     Route: 048
     Dates: end: 201104
  8. METOPROLOL TARTRATE TABLETS, USP [Suspect]
     Indication: BLOOD PRESSURE INCREASED
     Route: 048
     Dates: end: 201104
  9. METOPROLOL TARTRATE TABLETS, USP [Suspect]
     Indication: ARRHYTHMIA
     Route: 048
     Dates: end: 201104
  10. METOPROLOL TARTRATE TABLETS, USP [Suspect]
     Indication: ARRHYTHMIA
     Route: 048
     Dates: end: 201104
  11. METOPROLOL TARTRATE TABLETS, USP [Suspect]
     Indication: BLOOD PRESSURE INCREASED
     Route: 048
     Dates: end: 201104
  12. METOPROLOL TARTRATE TABLETS, USP [Suspect]
     Indication: ARRHYTHMIA
     Route: 048
     Dates: end: 201104
  13. METOPROLOL TARTRATE TABLETS, USP [Suspect]
     Indication: ARRHYTHMIA
     Route: 048
     Dates: start: 201104, end: 201203
  14. METOPROLOL TARTRATE TABLETS, USP [Suspect]
     Indication: BLOOD PRESSURE INCREASED
     Route: 048
     Dates: start: 201104, end: 201203
  15. METOPROLOL TARTRATE TABLETS, USP [Suspect]
     Indication: ARRHYTHMIA
     Route: 048
     Dates: start: 201104, end: 201203
  16. AMBIEN [Concomitant]
     Indication: INSOMNIA
     Route: 048

REACTIONS (11)
  - Pain in extremity [Recovered/Resolved]
  - Temperature intolerance [Recovered/Resolved]
  - Skin discolouration [Not Recovered/Not Resolved]
  - Pain in extremity [Recovered/Resolved]
  - Dry skin [Recovered/Resolved]
  - Skin exfoliation [Recovered/Resolved]
  - Rash [Recovered/Resolved]
  - Pain in extremity [Recovered/Resolved]
  - Musculoskeletal pain [Recovered/Resolved]
  - Pain in extremity [Recovered/Resolved]
  - Skin discolouration [Recovered/Resolved]
